FAERS Safety Report 10021410 (Version 1)
Quarter: 2014Q1

REPORT INFORMATION
  Report Type: Spontaneous
  Country: JP (occurrence: JP)
  Receive Date: 20140319
  Receipt Date: 20140319
  Transmission Date: 20141002
  Serious: Yes (Hospitalization)
  Sender: FDA-Public Use
  Company Number: JP-MYLANLABS-2014S1005416

PATIENT
  Age: 73 Year
  Sex: Male

DRUGS (3)
  1. PREDNISOLONE [Suspect]
     Indication: NEPHROTIC SYNDROME
     Dosage: 40 MG/DAY
     Route: 065
     Dates: start: 200908, end: 201110
  2. CICLOSPORIN [Concomitant]
     Indication: NEPHROTIC SYNDROME
     Dosage: 100 MG/DAY; DECREASED TO 50MG
     Route: 065
     Dates: start: 200908, end: 201001
  3. CICLOSPORIN [Concomitant]
     Indication: NEPHROTIC SYNDROME
     Dosage: 50MG
     Route: 065
     Dates: start: 200908, end: 201001

REACTIONS (3)
  - Central obesity [Unknown]
  - Respiratory failure [Recovering/Resolving]
  - Cushingoid [Unknown]
